FAERS Safety Report 9300553 (Version 2)
Quarter: 2013Q2

REPORT INFORMATION
  Report Type: Spontaneous
  Country: FR (occurrence: FR)
  Receive Date: 20130521
  Receipt Date: 20130523
  Transmission Date: 20140414
  Serious: Yes (Death, Life-Threatening)
  Sender: FDA-Public Use
  Company Number: FR-PFIZER INC-2013155195

PATIENT
  Age: 80 Year
  Sex: Male

DRUGS (12)
  1. CORDARONE [Suspect]
     Indication: ATRIAL FIBRILLATION
     Dosage: 200 MG, DAILY
     Route: 048
     Dates: start: 20121120, end: 20130101
  2. BLEOMYCIN SULFATE [Suspect]
     Indication: HODGKIN^S DISEASE
     Dosage: 20 MG, UNK
     Route: 042
     Dates: start: 20121106, end: 20121218
  3. DIFFU K [Concomitant]
     Dosage: UNK
  4. PRIMPERAN [Concomitant]
     Dosage: UNK
  5. INEXIUM [Concomitant]
     Dosage: UNK
  6. LOVENOX [Concomitant]
     Dosage: UNK
  7. VINBLASTINE [Concomitant]
     Dosage: UNK
     Dates: start: 20121106, end: 20121204
  8. DOXORUBICIN [Concomitant]
     Dosage: UNK
     Dates: start: 20121106, end: 20121204
  9. DACARBAZINE [Concomitant]
     Dosage: UNK
     Dates: start: 20121106, end: 20121204
  10. KARDEGIC [Concomitant]
     Dosage: UNK
     Dates: start: 20121120
  11. EPOETIN BETA [Concomitant]
     Dosage: UNK
     Dates: start: 20121204
  12. GRANOCYTE [Concomitant]
     Dosage: UNK
     Dates: start: 20121204

REACTIONS (5)
  - Lung disorder [Fatal]
  - Interstitial lung disease [Fatal]
  - Alveolitis [Fatal]
  - Pneumothorax [Fatal]
  - Respiratory disorder [Fatal]
